FAERS Safety Report 24809774 (Version 3)
Quarter: 2025Q1

REPORT INFORMATION
  Report Type: Report from Study
  Country: US (occurrence: US)
  Receive Date: 20250106
  Receipt Date: 20250227
  Transmission Date: 20250409
  Serious: Yes (Death, Hospitalization)
  Sender: MYLAN
  Company Number: US-MYLANLABS-2025M1001153

PATIENT
  Sex: Female

DRUGS (1)
  1. ATORVASTATIN [Suspect]
     Active Substance: ATORVASTATIN
     Indication: Product used for unknown indication

REACTIONS (1)
  - No adverse event [Fatal]
